FAERS Safety Report 18302718 (Version 1)
Quarter: 2020Q3

REPORT INFORMATION
  Report Type: Spontaneous
  Country: JP (occurrence: JP)
  Receive Date: 20200923
  Receipt Date: 20200923
  Transmission Date: 20201103
  Serious: Yes (Other)
  Sender: FDA-Public Use
  Company Number: JP-EISAI MEDICAL RESEARCH-EC-2020-080674

PATIENT
  Age: 75 Year
  Sex: Male

DRUGS (2)
  1. PEMBROLIZUMAB (GENETICAL RECOMBINATION) [Suspect]
     Active Substance: PEMBROLIZUMAB
     Indication: PRODUCT USED FOR UNKNOWN INDICATION
     Dosage: DOSE AND FREQUENCY NOT PROVIDED
     Route: 065
  2. PARIET [Suspect]
     Active Substance: RABEPRAZOLE SODIUM
     Indication: PRODUCT USED FOR UNKNOWN INDICATION
     Dosage: DOSE AND FREQUENCY NOT PROVIDED
     Route: 048

REACTIONS (1)
  - Tubulointerstitial nephritis [Recovered/Resolved]
